FAERS Safety Report 16665082 (Version 1)
Quarter: 2019Q3

REPORT INFORMATION
  Report Type: Spontaneous
  Country: FR (occurrence: FR)
  Receive Date: 20190803
  Receipt Date: 20190803
  Transmission Date: 20191004
  Serious: Yes (Other)
  Sender: FDA-Public Use
  Company Number: FR-SUN PHARMACEUTICAL INDUSTRIES LTD-2019RR-216313

PATIENT
  Age: 10 Year
  Sex: Female

DRUGS (1)
  1. CETIRIZINE [Suspect]
     Active Substance: CETIRIZINE HYDROCHLORIDE
     Indication: ACCIDENTAL EXPOSURE TO PRODUCT BY CHILD
     Dosage: 0.49 MILLIGRAM/KILOGRAM (ACCIDENTALLY TAKING TWO 10 MG TABLETS)
     Route: 048

REACTIONS (4)
  - Incorrect dose administered [Unknown]
  - Headache [Unknown]
  - Confusional state [Unknown]
  - Incoherent [Unknown]
